FAERS Safety Report 6059302-8 (Version None)
Quarter: 2009Q1

REPORT INFORMATION
  Report Type: 
  Country: None (occurrence: None)
  Receive Date: 20090130
  Receipt Date: 20090115
  Transmission Date: 20090719
  Serious: Yes (Hospitalization)
  Sender: FDA-Public Use
  Company Number: FR-AVENTIS-200910173FR

PATIENT
  Age: 88 Year
  Sex: Male

DRUGS (8)
  1. FLAGYL [Suspect]
     Indication: PSEUDOMEMBRANOUS COLITIS
     Dates: start: 20081016, end: 20081024
  2. FUNGIZONE [Concomitant]
     Route: 048
     Dates: start: 20081020, end: 20081024
  3. PYOSTACINE [Concomitant]
     Dates: start: 20081020, end: 20081024
  4. AUGMENTIN '125' [Concomitant]
     Dates: start: 20080913, end: 20080919
  5. FOZITEC                            /00915301/ [Concomitant]
  6. XATRAL                             /00975301/ [Concomitant]
  7. ATHYMIL [Concomitant]
  8. TEMESTA                            /00273201/ [Concomitant]

REACTIONS (3)
  - ECZEMA [None]
  - PURPURA [None]
  - SCAB [None]
